FAERS Safety Report 8073882-2 (Version None)
Quarter: 2012Q1

REPORT INFORMATION
  Report Type: 
  Country: None (occurrence: None)
  Receive Date: 20120126
  Receipt Date: 20120120
  Transmission Date: 20120608
  Serious: Yes (Life-Threatening)
  Sender: FDA-Public Use
  Company Number: PHEH2012US002134

PATIENT
  Sex: Female

DRUGS (2)
  1. EXJADE [Suspect]
     Indication: LYMPHATIC SYSTEM NEOPLASM
     Dosage: 1500 MG, QD
     Route: 048
  2. EXJADE [Suspect]
     Indication: HAEMATOPOIETIC NEOPLASM

REACTIONS (2)
  - TERMINAL STATE [None]
  - GENERAL PHYSICAL HEALTH DETERIORATION [None]
